FAERS Safety Report 12944719 (Version 4)
Quarter: 2017Q2

REPORT INFORMATION
  Report Type: Spontaneous
  Country: JP (occurrence: JP)
  Receive Date: 20161116
  Receipt Date: 20170603
  Transmission Date: 20170830
  Serious: Yes (Death, Life-Threatening, Other)
  Sender: FDA-Public Use
  Company Number: JP-AMGEN-JPNNI2016161449

PATIENT
  Age: 85 Year
  Sex: Female

DRUGS (15)
  1. NEXIUM [Concomitant]
     Active Substance: ESOMEPRAZOLE MAGNESIUM
     Dosage: UNK
  2. MAGMITT [Concomitant]
     Active Substance: MAGNESIUM OXIDE
     Dosage: UNK
  3. KYPROLIS [Suspect]
     Active Substance: CARFILZOMIB
     Dosage: 27 MG/M2, UNK
     Route: 041
     Dates: start: 20161007, end: 20161007
  4. ACICLOVIR [Concomitant]
     Active Substance: ACYCLOVIR
     Dosage: UNK
  5. BAYASPIRIN [Concomitant]
     Active Substance: ASPIRIN
     Dosage: UNK
  6. BACTRAMIN [Concomitant]
     Active Substance: SULFAMETHOXAZOLE\TRIMETHOPRIM
     Dosage: UNK
  7. FENTOS [Concomitant]
     Active Substance: FENTANYL
     Dosage: UNK
  8. KYPROLIS [Suspect]
     Active Substance: CARFILZOMIB
     Indication: PLASMA CELL MYELOMA
     Dosage: 20 MG/M2, QD
     Route: 041
     Dates: start: 20160926, end: 20160926
  9. TRAMCET [Concomitant]
     Active Substance: ACETAMINOPHEN\TRAMADOL
     Dosage: UNK
  10. CALONAL [Concomitant]
     Active Substance: ACETAMINOPHEN
     Dosage: UNK
  11. SENNOSIDE [Concomitant]
     Active Substance: SENNOSIDES
     Dosage: UNK
  12. LENALIDOMIDE [Concomitant]
     Active Substance: LENALIDOMIDE
     Dosage: UNK
     Dates: start: 201609, end: 20160926
  13. AMLODIN [Concomitant]
     Active Substance: AMLODIPINE BESYLATE
     Dosage: 2.5 MG, UNK
  14. KALIMATE [Concomitant]
     Active Substance: CALCIUM POLYSTYRENE SULFONATE
     Dosage: UNK
  15. LENADEX [Concomitant]
     Active Substance: DEXAMETHASONE ACETATE
     Dosage: UNK
     Dates: end: 20160926

REACTIONS (4)
  - Septic shock [Recovered/Resolved]
  - Tumour lysis syndrome [Unknown]
  - Cardiac failure [Fatal]
  - Pneumonia aspiration [Unknown]

NARRATIVE: CASE EVENT DATE: 20160928
